FAERS Safety Report 8075099-4 (Version None)
Quarter: 2012Q1

REPORT INFORMATION
  Report Type: 
  Country: None (occurrence: None)
  Receive Date: 20120127
  Receipt Date: 20120124
  Transmission Date: 20120608
  Serious: No
  Sender: FDA-Public Use
  Company Number: US-BIOGENIDEC-2012BI002583

PATIENT
  Sex: Female

DRUGS (2)
  1. TYSABRI [Suspect]
     Indication: MULTIPLE SCLEROSIS
     Route: 042
     Dates: start: 20080929
  2. AVONEX [Concomitant]
     Indication: MULTIPLE SCLEROSIS
     Route: 030

REACTIONS (9)
  - MEMORY IMPAIRMENT [None]
  - PAIN [None]
  - POLLAKIURIA [None]
  - MUSCLE SPASMS [None]
  - HYPOAESTHESIA [None]
  - COORDINATION ABNORMAL [None]
  - ABDOMINAL DISTENSION [None]
  - VISION BLURRED [None]
  - DYSURIA [None]
